FAERS Safety Report 9536891 (Version 2)
Quarter: 2014Q1

REPORT INFORMATION
  Report Type: Spontaneous
  Country: US (occurrence: US)
  Receive Date: 20130919
  Receipt Date: 20140214
  Transmission Date: 20141002
  Serious: Yes (Hospitalization, Other)
  Sender: FDA-Public Use
  Company Number: US-BAYER-2013-112613

PATIENT
  Age: 25 Year
  Sex: Female
  Weight: 72.56 kg

DRUGS (1)
  1. MIRENA [Suspect]
     Indication: CONTRACEPTION
     Dosage: 20 MCG/24HR, CONT
     Route: 015
     Dates: start: 20080205, end: 20100824

REACTIONS (13)
  - Uterine perforation [None]
  - Haematochezia [None]
  - Abdominal pain upper [None]
  - Back pain [None]
  - Injury [None]
  - Emotional distress [None]
  - Mobility decreased [None]
  - Insomnia [None]
  - Anxiety [None]
  - Panic attack [None]
  - Psychological trauma [None]
  - Pain [None]
  - Medical device pain [None]
